FAERS Safety Report 24907811 (Version 1)
Quarter: 2025Q1

REPORT INFORMATION
  Report Type: Spontaneous
  Country: AT (occurrence: AT)
  Receive Date: 20250131
  Receipt Date: 20250131
  Transmission Date: 20250409
  Serious: Yes (Hospitalization)
  Sender: TEVA
  Company Number: AT-EMA-DD-20190726-khare_i-121929

PATIENT
  Sex: Male
  Weight: 100 kg

DRUGS (5)
  1. ARIPIPRAZOLE [Suspect]
     Active Substance: ARIPIPRAZOLE
     Indication: Product used for unknown indication
     Route: 048
     Dates: start: 201806
  2. ARIPIPRAZOLE [Suspect]
     Active Substance: ARIPIPRAZOLE
     Indication: Product used for unknown indication
     Route: 030
     Dates: start: 201806
  3. ARIPIPRAZOLE [Suspect]
     Active Substance: ARIPIPRAZOLE
     Indication: Product used for unknown indication
     Route: 030
     Dates: start: 201806
  4. ARIPIPRAZOLE [Suspect]
     Active Substance: ARIPIPRAZOLE
     Indication: Product used for unknown indication
     Route: 030
     Dates: start: 20180329
  5. VALPROATE SODIUM [Suspect]
     Active Substance: VALPROATE SODIUM
     Indication: Anamnestic reaction
     Dosage: DOSAGE TEXT: THERAPY START DATE  AND  THERAPY END DATE : ASKED BUT UNKNOWN
     Route: 065

REACTIONS (7)
  - Drug ineffective [Unknown]
  - Antipsychotic drug level decreased [Not Recovered/Not Resolved]
  - Dysphagia [Unknown]
  - Biliary tract disorder [Unknown]
  - Overdose [Unknown]
  - Product use in unapproved indication [Unknown]
  - Anamnestic reaction [Unknown]

NARRATIVE: CASE EVENT DATE: 20180409
